FAERS Safety Report 5503853-9 (Version None)
Quarter: 2007Q4

REPORT INFORMATION
  Report Type: 
  Country: None (occurrence: None)
  Receive Date: 20071030
  Receipt Date: 20071023
  Transmission Date: 20080405
  Serious: Yes (Other)
  Sender: FDA-Public Use
  Company Number: 2007331423

PATIENT
  Age: 33 Year
  Sex: Female
  Weight: 52.1637 kg

DRUGS (2)
  1. BEN-GAY ULTRA (MENTHOL, CAMPHOR, METHYL, SALICYLATE) [Suspect]
     Indication: BACK PAIN
     Dosage: A NICKLE SIZE ONCE, TOPICAL
     Route: 061
     Dates: start: 20070929, end: 20070929
  2. CYMBALTA [Concomitant]

REACTIONS (3)
  - PAIN [None]
  - SCAR [None]
  - URTICARIA [None]
